FAERS Safety Report 16242450 (Version 2)
Quarter: 2024Q4

REPORT INFORMATION
  Report Type: Spontaneous
  Country: AT (occurrence: AT)
  Receive Date: 20190426
  Receipt Date: 20241030
  Transmission Date: 20250115
  Serious: Yes (Hospitalization, Other)
  Sender: CELLTRION
  Company Number: AT-CELLTRION INC.-2019AT020647

PATIENT

DRUGS (13)
  1. RITUXIMAB [Suspect]
     Active Substance: RITUXIMAB
     Indication: Diffuse large B-cell lymphoma refractory
     Dosage: UNK, SOLUTION FOR INFUSION
     Route: 042
     Dates: start: 201411
  2. RITUXIMAB [Suspect]
     Active Substance: RITUXIMAB
     Dosage: MONOTHERAPY 2 CYCLES, SOLUTION FOR 2 CYCLES, SOLUTION FOR INFUSION
     Route: 042
     Dates: start: 201808
  3. RITUXIMAB [Suspect]
     Active Substance: RITUXIMAB
     Dosage: UNK, SOLUTION FOR INFUSION
     Route: 042
     Dates: start: 20190329
  4. RITUXIMAB [Suspect]
     Active Substance: RITUXIMAB
     Dosage: UNK
  5. CORTISONE ACETATE [Suspect]
     Active Substance: CORTISONE ACETATE
     Indication: Diffuse large B-cell lymphoma refractory
     Dosage: UNK
     Route: 065
     Dates: start: 20190329
  6. ETOPOSIDE [Concomitant]
     Active Substance: ETOPOSIDE
     Dosage: UNK
  7. SELINEXOR [Concomitant]
     Active Substance: SELINEXOR
     Dosage: UNK
     Dates: start: 201802
  8. DOXORUBICIN [Concomitant]
     Active Substance: DOXORUBICIN
     Dosage: 6 CYCLES
     Dates: start: 201808
  9. PREDNISONE [Concomitant]
     Active Substance: PREDNISONE
     Dosage: 6 CYCLES
     Dates: start: 201808
  10. CARBOPLATIN [Concomitant]
     Active Substance: CARBOPLATIN
     Dosage: UNK
  11. CYCLOPHOSPHAMIDE [Concomitant]
     Active Substance: CYCLOPHOSPHAMIDE
     Dosage: 6 CYCLES
     Dates: start: 201808
  12. VINCRISTINE [Concomitant]
     Active Substance: VINCRISTINE
     Dosage: 6 CYCLES
     Dates: start: 201808
  13. IFOSFAMIDE [Concomitant]
     Active Substance: IFOSFAMIDE
     Dosage: UNK

REACTIONS (4)
  - Hydronephrosis [Unknown]
  - Urinary retention [Unknown]
  - Pancytopenia [Unknown]
  - Therapy non-responder [Unknown]

NARRATIVE: CASE EVENT DATE: 20190403
